FAERS Safety Report 5746423-X (Version None)
Quarter: 2008Q2

REPORT INFORMATION
  Report Type: 
  Country: None (occurrence: None)
  Receive Date: 20080522
  Receipt Date: 20080516
  Transmission Date: 20081010
  Serious: Yes (Other)
  Sender: FDA-Public Use
  Company Number: A0728302A

PATIENT
  Age: 29 Year
  Sex: Female

DRUGS (3)
  1. PAXIL CR [Suspect]
     Indication: PANIC DISORDER
     Dosage: 12.5MG UNKNOWN
     Route: 048
     Dates: start: 20040301, end: 20041001
  2. FLEXERIL [Concomitant]
  3. AMBIEN [Concomitant]

REACTIONS (7)
  - ABORTION SPONTANEOUS [None]
  - DIZZINESS [None]
  - DRUG EXPOSURE DURING PREGNANCY [None]
  - LIVE BIRTH [None]
  - MOOD SWINGS [None]
  - PERFORMANCE STATUS DECREASED [None]
  - WITHDRAWAL SYNDROME [None]
